FAERS Safety Report 4428364-3 (Version None)
Quarter: 2004Q3

REPORT INFORMATION
  Report Type: 
  Country: None (occurrence: None)
  Receive Date: 20040813
  Receipt Date: 20040728
  Transmission Date: 20050211
  Serious: Yes (Hospitalization)
  Sender: FDA-Public Use
  Company Number: DSA_24766_2004

PATIENT
  Age: 42 Year
  Sex: Female

DRUGS (2)
  1. TAVOR [Suspect]
     Dosage: 30 TAB ONCE PO
     Route: 048
     Dates: start: 20040724, end: 20040724
  2. PERAZINE [Suspect]
     Dosage: 20 TAB ONCE PO
     Route: 048
     Dates: start: 20040724, end: 20040724

REACTIONS (3)
  - MULTIPLE DRUG OVERDOSE INTENTIONAL [None]
  - MYDRIASIS [None]
  - SOMNOLENCE [None]
